FAERS Safety Report 11732481 (Version 10)
Quarter: 2018Q2

REPORT INFORMATION
  Report Type: Spontaneous
  Country: US (occurrence: US)
  Receive Date: 20151113
  Receipt Date: 20180419
  Transmission Date: 20180711
  Serious: Yes (Other)
  Sender: FDA-Public Use
  Company Number: PHEH2015US023413

PATIENT
  Sex: Female
  Weight: 75.74 kg

DRUGS (5)
  1. ONDANSETRON HYDROCHLORIDE. [Suspect]
     Active Substance: ONDANSETRON HYDROCHLORIDE
     Dosage: 1 DF, Q6H
     Route: 048
  2. ONDANSETRON HYDROCHLORIDE. [Suspect]
     Active Substance: ONDANSETRON HYDROCHLORIDE
     Dosage: 4 MG, BID
     Route: 048
     Dates: start: 20140417
  3. ZOFRAN [Suspect]
     Active Substance: ONDANSETRON HYDROCHLORIDE
     Indication: VOMITING IN PREGNANCY
     Dosage: 04 MG PER 02 ML, Q6H
     Route: 042
     Dates: start: 20141112
  4. ZOFRAN [Suspect]
     Active Substance: ONDANSETRON HYDROCHLORIDE
     Indication: VOMITING IN PREGNANCY
     Route: 048
  5. ONDANSETRON HYDROCHLORIDE. [Suspect]
     Active Substance: ONDANSETRON HYDROCHLORIDE
     Indication: VOMITING IN PREGNANCY
     Dosage: 4 MG, BID
     Route: 048
     Dates: start: 20140329

REACTIONS (14)
  - Maternal exposure during pregnancy [Unknown]
  - Chest pain [Unknown]
  - Injury [Unknown]
  - Product use in unapproved indication [Unknown]
  - Oropharyngeal pain [Unknown]
  - Abdominal pain upper [Unknown]
  - Gestational diabetes [Unknown]
  - Oligohydramnios [Unknown]
  - Dyspnoea [Unknown]
  - Emotional distress [Unknown]
  - Cough [Unknown]
  - Urinary tract infection [Unknown]
  - Headache [Unknown]
  - Pruritus [Unknown]
